FAERS Safety Report 15395935 (Version 1)
Quarter: 2018Q3

REPORT INFORMATION
  Report Type: Spontaneous
  Country: US (occurrence: US)
  Receive Date: 20180912
  Receipt Date: 20180912
  Transmission Date: 20181010
  Serious: No
  Sender: FDA-Public Use
  Company Number: None

PATIENT
  Age: 28 Year
  Sex: Female

DRUGS (1)
  1. BUPRENOPHINE?NALOXONE [Suspect]
     Active Substance: BUPRENORPHINE HYDROCHLORIDE\NALOXONE HYDROCHLORIDE
     Indication: DRUG USE DISORDER
     Route: 060
     Dates: start: 20180219, end: 20180319

REACTIONS (6)
  - Mouth ulceration [None]
  - Lacrimation increased [None]
  - Product formulation issue [None]
  - Stomatitis [None]
  - Pruritus [None]
  - Insurance issue [None]

NARRATIVE: CASE EVENT DATE: 20180319
